FAERS Safety Report 12779515 (Version 1)
Quarter: 2016Q3

REPORT INFORMATION
  Report Type: Spontaneous
  Country: US (occurrence: US)
  Receive Date: 20160922
  Receipt Date: 20160922
  Transmission Date: 20161109
  Serious: Yes (Hospitalization)
  Sender: FDA-Public Use
  Company Number: None

PATIENT
  Age: 91 Year
  Sex: Male
  Weight: 70 kg

DRUGS (1)
  1. IMATINIB [Suspect]
     Active Substance: IMATINIB
     Indication: NEOPLASM MALIGNANT
     Route: 048
     Dates: start: 20081015, end: 20110427

REACTIONS (4)
  - Nausea [None]
  - Abdominal pain [None]
  - Pancreatitis [None]
  - Vomiting [None]

NARRATIVE: CASE EVENT DATE: 20110427
